FAERS Safety Report 18831455 (Version 1)
Quarter: 2021Q1

REPORT INFORMATION
  Report Type: Spontaneous
  Country: US (occurrence: US)
  Receive Date: 20210203
  Receipt Date: 20210203
  Transmission Date: 20210419
  Serious: No
  Sender: FDA-Public Use
  Company Number: US-JNJFOC-20210109101

PATIENT
  Age: 28 Year
  Sex: Female

DRUGS (3)
  1. TYLENOL [Suspect]
     Active Substance: ACETAMINOPHEN
     Indication: HEART RATE INCREASED
     Route: 065
     Dates: start: 20201229
  2. BENADRYL [Suspect]
     Active Substance: DIPHENHYDRAMINE HYDROCHLORIDE
     Indication: HEART RATE INCREASED
     Route: 065
     Dates: start: 20201229
  3. COVID?19 VACCINE NOS. [Concomitant]
     Active Substance: COVID-19 VACCINE NOS
     Indication: IMMUNISATION
     Dosage: 11:15 AM
     Route: 065
     Dates: start: 20201229

REACTIONS (6)
  - Swelling face [Recovering/Resolving]
  - Product use in unapproved indication [Unknown]
  - Ear swelling [Recovering/Resolving]
  - Therapeutic response unexpected [Unknown]
  - Drug hypersensitivity [Recovering/Resolving]
  - Off label use [Unknown]

NARRATIVE: CASE EVENT DATE: 20201229
